FAERS Safety Report 8341544-X (Version None)
Quarter: 2012Q2

REPORT INFORMATION
  Report Type: 
  Country: None (occurrence: None)
  Receive Date: 20120507
  Receipt Date: 20100311
  Transmission Date: 20120825
  Serious: No
  Sender: FDA-Public Use
  Company Number: US-TEVA-2010001462

PATIENT
  Age: 68 Year
  Sex: Male
  Weight: 97.156 kg

DRUGS (2)
  1. RITUXAN [Suspect]
     Indication: NON-HODGKIN'S LYMPHOMA
     Dates: start: 20100201
  2. TREANDA [Suspect]
     Indication: NON-HODGKIN'S LYMPHOMA
     Route: 042
     Dates: start: 20100201

REACTIONS (1)
  - RASH MACULO-PAPULAR [None]
